FAERS Safety Report 9098305 (Version 1)
Quarter: 2013Q1

REPORT INFORMATION
  Report Type: Spontaneous
  Country: US (occurrence: US)
  Receive Date: 20130213
  Receipt Date: 20130213
  Transmission Date: 20140127
  Serious: No
  Sender: FDA-Public Use
  Company Number: US-TEVA-321753USA

PATIENT
  Sex: Female

DRUGS (1)
  1. AMRIX [Suspect]

REACTIONS (3)
  - Feeling jittery [Unknown]
  - Restlessness [Unknown]
  - Blepharospasm [Unknown]
